FAERS Safety Report 6785223-9 (Version None)
Quarter: 2010Q2

REPORT INFORMATION
  Report Type: 
  Country: None (occurrence: None)
  Receive Date: 20100622
  Receipt Date: 20100622
  Transmission Date: 20101027
  Serious: Yes (Life-Threatening)
  Sender: FDA-Public Use
  Company Number: None

PATIENT
  Age: 62 Year
  Sex: Male
  Weight: 90.5 kg

DRUGS (1)
  1. LORAZEPAM [Suspect]
     Indication: AGITATION
     Dosage: 2 MG PRN IV
     Route: 042
     Dates: start: 20100502, end: 20100507

REACTIONS (12)
  - AMMONIA INCREASED [None]
  - ASPIRATION [None]
  - HYPERCALCAEMIA [None]
  - HYPERCAPNIA [None]
  - LIVER DISORDER [None]
  - MALIGNANT MELANOMA [None]
  - MENTAL STATUS CHANGES [None]
  - RESPIRATORY FAILURE [None]
  - SCHIZOPHRENIA [None]
  - SEDATION [None]
  - SKIN LESION [None]
  - SOMNOLENCE [None]
